FAERS Safety Report 5018800-6 (Version None)
Quarter: 2006Q2

REPORT INFORMATION
  Report Type: 
  Country: None (occurrence: None)
  Receive Date: 20060526
  Receipt Date: 20060518
  Transmission Date: 20061013
  Serious: Yes (Hospitalization)
  Sender: FDA-Public Use
  Company Number: 200612114GDS

PATIENT
  Age: 77 Year
  Sex: Male

DRUGS (3)
  1. AVELOX [Suspect]
     Indication: PYREXIA
     Dosage: 400 MG, QD, ORAL
     Route: 048
     Dates: start: 20060427, end: 20060501
  2. MEPRAL [Concomitant]
  3. KARVEZIDE [Concomitant]

REACTIONS (1)
  - ENTERITIS [None]
